FAERS Safety Report 7926969-6 (Version None)
Quarter: 2011Q4

REPORT INFORMATION
  Report Type: 
  Country: None (occurrence: None)
  Receive Date: 20111118
  Receipt Date: 20111111
  Transmission Date: 20120403
  Serious: Yes (Hospitalization, Other)
  Sender: FDA-Public Use
  Company Number: JP-JNJFOC-20111009621

PATIENT
  Sex: Male
  Weight: 33 kg

DRUGS (23)
  1. CYTOTEC [Concomitant]
     Indication: PRODUCT USED FOR UNKNOWN INDICATION
     Route: 048
  2. FLIVAS [Concomitant]
     Indication: PRODUCT USED FOR UNKNOWN INDICATION
     Route: 048
  3. PROCHLORPERAZINE [Concomitant]
     Indication: PROPHYLAXIS
     Route: 048
     Dates: start: 20100725, end: 20100811
  4. PYRINAZIN [Concomitant]
     Indication: PAIN
     Route: 048
     Dates: start: 20100717
  5. BREDININ [Concomitant]
     Indication: PAIN
     Route: 048
  6. ALLOPURINOL [Concomitant]
     Indication: HYPERURICAEMIA
     Route: 048
  7. FENTANYL [Suspect]
     Route: 062
     Dates: start: 20100725, end: 20100731
  8. PROGRAF [Concomitant]
     Indication: PAIN
     Route: 048
  9. MUCODYNE [Concomitant]
     Indication: PRODUCT USED FOR UNKNOWN INDICATION
     Route: 048
  10. SILECE [Concomitant]
     Indication: INSOMNIA
     Route: 048
  11. OMEPRAZOLE [Concomitant]
     Indication: PRODUCT USED FOR UNKNOWN INDICATION
     Route: 048
  12. PREDNISOLONE [Concomitant]
     Indication: PAIN
     Route: 048
  13. DOGMATYL [Concomitant]
     Indication: PRODUCT USED FOR UNKNOWN INDICATION
     Route: 048
  14. PURSENNID [Concomitant]
     Indication: PROPHYLAXIS
     Route: 048
     Dates: start: 20100725, end: 20100818
  15. FENTANYL [Suspect]
     Indication: PAIN
     Route: 062
     Dates: start: 20100812, end: 20100813
  16. DIFLUCAN [Concomitant]
     Indication: PROPHYLAXIS
     Route: 048
  17. PAXIL [Concomitant]
     Indication: PRODUCT USED FOR UNKNOWN INDICATION
     Route: 048
  18. FENTANYL [Suspect]
     Route: 062
     Dates: start: 20100813
  19. FENTANYL [Suspect]
     Route: 062
     Dates: start: 20100731, end: 20100812
  20. MAGNESIUM SULFATE [Concomitant]
     Indication: PROPHYLAXIS
     Route: 048
     Dates: start: 20100725, end: 20100831
  21. LUDIOMIL [Concomitant]
     Indication: PROPHYLAXIS
     Route: 048
  22. LENDORMIN [Concomitant]
     Indication: INSOMNIA
     Route: 048
  23. SPIRIVA [Concomitant]
     Indication: ASTHMA
     Route: 055

REACTIONS (2)
  - SOMNOLENCE [None]
  - DELIRIUM [None]
